FAERS Safety Report 17316529 (Version 3)
Quarter: 2022Q3

REPORT INFORMATION
  Report Type: Spontaneous
  Country: US (occurrence: US)
  Receive Date: 20200124
  Receipt Date: 20220801
  Transmission Date: 20221027
  Serious: Yes (Hospitalization, Disabling)
  Sender: FDA-Public Use
  Company Number: US-JNJFOC-20200125135

PATIENT
  Age: 46 Year
  Sex: Male

DRUGS (2)
  1. INVOKANA [Suspect]
     Active Substance: CANAGLIFLOZIN
     Indication: Type 2 diabetes mellitus
     Route: 048
  2. INVOKANA [Suspect]
     Active Substance: CANAGLIFLOZIN
     Route: 048
     Dates: start: 20141211, end: 20160502

REACTIONS (3)
  - Osteomyelitis [Not Recovered/Not Resolved]
  - Diabetic foot infection [Unknown]
  - Leg amputation [Unknown]

NARRATIVE: CASE EVENT DATE: 20150301
